FAERS Safety Report 20946486 (Version 3)
Quarter: 2023Q1

REPORT INFORMATION
  Report Type: Report from Study
  Country: ES (occurrence: ES)
  Receive Date: 20220610
  Receipt Date: 20230228
  Transmission Date: 20230417
  Serious: Yes (Hospitalization)
  Sender: FDA-Public Use
  Company Number: ES-JNJFOC-20220616689

PATIENT
  Age: 44 Year
  Sex: Male

DRUGS (29)
  1. COBICISTAT\DARUNAVIR\EMTRICITABINE\TENOFOVIR ALAFENAMIDE [Suspect]
     Active Substance: COBICISTAT\DARUNAVIR\EMTRICITABINE\TENOFOVIR ALAFENAMIDE
     Indication: HIV infection
     Dosage: 800 MG / 150 MG / 200 MG / 10 MG
     Route: 048
     Dates: start: 20220511
  2. GANCICLOVIR [Concomitant]
     Active Substance: GANCICLOVIR
     Indication: Cytomegalovirus oesophagitis
     Dates: start: 20220607, end: 20220612
  3. VALGANCICLOVIR [Concomitant]
     Active Substance: VALGANCICLOVIR
     Indication: Oesophagitis
     Route: 048
     Dates: start: 20220613, end: 20220628
  4. IBUPROFEN [Concomitant]
     Active Substance: IBUPROFEN
     Indication: Stomatitis
     Dates: start: 20220609, end: 20220610
  5. MOVICOL [Concomitant]
     Active Substance: POLYETHYLENE GLYCOL 3350\POTASSIUM CHLORIDE\SODIUM BICARBONATE\SODIUM CHLORIDE
     Indication: Constipation
     Dates: start: 20220609, end: 20220614
  6. PAROXETINE [Concomitant]
     Active Substance: PAROXETINE
     Indication: Depression
  7. DIAZEPAM [Concomitant]
     Active Substance: DIAZEPAM
     Indication: Depression
  8. TRIMETHOPRIM [Concomitant]
     Active Substance: TRIMETHOPRIM
     Indication: Pneumocystis jirovecii pneumonia
     Dates: start: 20220502, end: 20220518
  9. SULFAMETHOXAZOLE [Concomitant]
     Active Substance: SULFAMETHOXAZOLE
     Indication: Pneumocystis jirovecii pneumonia
     Route: 048
     Dates: start: 20220502, end: 20220515
  10. FLUCONAZOLE [Concomitant]
     Active Substance: FLUCONAZOLE
     Indication: Oropharyngeal candidiasis
     Route: 042
     Dates: start: 20220602, end: 20220607
  11. FLUCONAZOLE [Concomitant]
     Active Substance: FLUCONAZOLE
     Indication: Oral candidiasis
     Dates: start: 20220608, end: 20220613
  12. FLUCONAZOLE [Concomitant]
     Active Substance: FLUCONAZOLE
     Dates: start: 20220609, end: 20220614
  13. FLUCONAZOLE [Concomitant]
     Active Substance: FLUCONAZOLE
     Dates: start: 20220704
  14. LACTULOSE [Concomitant]
     Active Substance: LACTULOSE
     Indication: Constipation
     Dates: start: 20220524, end: 20220525
  15. LIDOCAINE [Concomitant]
     Active Substance: LIDOCAINE
     Indication: Pain management
     Dates: start: 20220603, end: 20220603
  16. LIDOCAINE [Concomitant]
     Active Substance: LIDOCAINE
     Dates: start: 20220604, end: 20220610
  17. LIDOCAINE [Concomitant]
     Active Substance: LIDOCAINE
     Dates: start: 20220611, end: 20220611
  18. LIDOCAINE [Concomitant]
     Active Substance: LIDOCAINE
     Dates: start: 20220612, end: 20220612
  19. LIDOCAINE [Concomitant]
     Active Substance: LIDOCAINE
     Dates: start: 20220613, end: 20220613
  20. LIDOCAINE [Concomitant]
     Active Substance: LIDOCAINE
     Dates: start: 20220615
  21. ACETAMINOPHEN [Concomitant]
     Active Substance: ACETAMINOPHEN
     Indication: Stomatitis
     Dates: start: 20220703
  22. ACETAMINOPHEN [Concomitant]
     Active Substance: ACETAMINOPHEN
     Indication: Arthritis
  23. AMOXICILLIN [Concomitant]
     Active Substance: AMOXICILLIN
     Indication: Arthritis
     Dates: start: 20220701, end: 20220703
  24. AMOXICILLIN [Concomitant]
     Active Substance: AMOXICILLIN
     Indication: Cellulitis
     Dates: start: 20220703
  25. CLAVULANIC ACID [Concomitant]
     Active Substance: CLAVULANIC ACID
     Indication: Arthritis
     Dates: start: 20220701, end: 20220703
  26. CLAVULANIC ACID [Concomitant]
     Active Substance: CLAVULANIC ACID
     Indication: Cellulitis
     Dates: start: 20220703
  27. METAMIZOLE [Concomitant]
     Active Substance: METAMIZOLE
     Indication: Arthritis
     Dates: start: 20220704
  28. DEXKETOPROFEN [Concomitant]
     Active Substance: DEXKETOPROFEN
     Indication: Arthritis
     Dates: start: 20220705
  29. ENOXAPARIN [Concomitant]
     Active Substance: ENOXAPARIN
     Indication: Pulmonary embolism
     Dates: start: 20220703

REACTIONS (2)
  - Immune reconstitution inflammatory syndrome [Recovered/Resolved]
  - Pneumonia [Not Recovered/Not Resolved]

NARRATIVE: CASE EVENT DATE: 20220515
